FAERS Safety Report 6163722-0 (Version None)
Quarter: 2009Q2

REPORT INFORMATION
  Report Type: 
  Country: None (occurrence: None)
  Receive Date: 20090422
  Receipt Date: 20090415
  Transmission Date: 20091009
  Serious: Yes (Hospitalization, Other)
  Sender: FDA-Public Use
  Company Number: DE-ABBOTT-08P-062-0493112-00

PATIENT
  Sex: Female
  Weight: 109 kg

DRUGS (6)
  1. HUMIRA [Suspect]
     Indication: CROHN'S DISEASE
     Route: 058
     Dates: start: 20080512, end: 20081024
  2. HUMIRA [Suspect]
     Dates: start: 20081121
  3. HUMIRA [Suspect]
     Dates: end: 20090225
  4. BUDENOFALK [Concomitant]
     Indication: DRUG USE FOR UNKNOWN INDICATION
  5. METEX [Concomitant]
     Indication: DRUG USE FOR UNKNOWN INDICATION
  6. SALOFALK [Concomitant]
     Indication: DRUG USE FOR UNKNOWN INDICATION

REACTIONS (4)
  - ANAL FISTULA [None]
  - ANAL SPHINCTER HYPERTONIA [None]
  - IMPAIRED HEALING [None]
  - NASOPHARYNGITIS [None]
